FAERS Safety Report 4911095-0 (Version None)
Quarter: 2006Q1

REPORT INFORMATION
  Report Type: 
  Country: None (occurrence: None)
  Receive Date: 20060214
  Receipt Date: 20060208
  Transmission Date: 20060701
  Serious: Yes (Other)
  Sender: FDA-Public Use
  Company Number: US-MERCK-0602USA02353

PATIENT
  Age: 63 Year
  Sex: Male

DRUGS (1)
  1. VYTORIN [Suspect]
     Indication: BLOOD CHOLESTEROL INCREASED
     Route: 048
     Dates: start: 20050401, end: 20060101

REACTIONS (4)
  - ADHESION [None]
  - ATROPHY [None]
  - MUSCULAR WEAKNESS [None]
  - PAIN [None]
